FAERS Safety Report 5643781-1 (Version None)
Quarter: 2008Q1

REPORT INFORMATION
  Report Type: 
  Country: None (occurrence: None)
  Receive Date: 20080226
  Receipt Date: 20071201
  Transmission Date: 20080703
  Serious: Yes (Hospitalization)
  Sender: FDA-Public Use
  Company Number: 2007AP001010

PATIENT
  Age: 80 Year
  Sex: Female

DRUGS (13)
  1. METFORMIN HCL [Suspect]
     Indication: DIABETES MELLITUS
     Dosage: 500 MG; QD; PO
     Route: 048
     Dates: start: 20070801, end: 20070912
  2. RALOXIFENE HYDROCHLORIDE [Concomitant]
  3. .. [Concomitant]
  4. ATORVASTATIN CALCIUM [Concomitant]
  5. ATENOLOL [Concomitant]
  6. POTASSIUM CHLORIDE [Concomitant]
  7. CALCIUM WITH VITAMIN D [Concomitant]
  8. ASPIRIN [Concomitant]
  9. PIOGLITAZONE HCL [Concomitant]
  10. ALLOPURINOL [Concomitant]
  11. FAMOTIDINE [Concomitant]
  12. GLIIMEPIRIDE [Concomitant]
  13. VITAMIN CAP [Concomitant]

REACTIONS (1)
  - ANAPHYLACTIC SHOCK [None]
